FAERS Safety Report 14229399 (Version 2)
Quarter: 2017Q4

REPORT INFORMATION
  Report Type: Spontaneous
  Country: US (occurrence: US)
  Receive Date: 20171128
  Receipt Date: 20171129
  Transmission Date: 20180321
  Serious: No
  Sender: FDA-Public Use
  Company Number: US-PFIZER INC-2017507012

PATIENT
  Age: 81 Year
  Sex: Female

DRUGS (7)
  1. CARBATROL [Concomitant]
     Active Substance: CARBAMAZEPINE
     Dosage: 200 (UNK), ONCE A DAY
  2. ACYCLOVIR /00587301/ [Concomitant]
     Active Substance: ACYCLOVIR
     Indication: HERPES ZOSTER
     Dosage: UNK
  3. LOSARTAN. [Concomitant]
     Active Substance: LOSARTAN
     Indication: HYPERTENSION
     Dosage: 50 MG, 2X/DAY
     Route: 048
  4. METOPROLOL SUCCINATE. [Concomitant]
     Active Substance: METOPROLOL SUCCINATE
     Indication: HYPERTENSION
     Dosage: 25 MG, 2X/DAY
     Route: 048
  5. ATROPINE SULFATE/DIPHENOXYLATE HYDROCHLORIDE [Suspect]
     Active Substance: ATROPINE SULFATE\DIPHENOXYLATE HYDROCHLORIDE
     Indication: DIARRHOEA
     Dosage: UNK, AS NEEDED
     Route: 048
  6. CARBATROL [Concomitant]
     Active Substance: CARBAMAZEPINE
     Indication: EPILEPSY
     Dosage: 300 (UNK), TWICE A DAY
     Route: 048
  7. PRAVASTATIN. [Concomitant]
     Active Substance: PRAVASTATIN
     Indication: BLOOD CHOLESTEROL
     Dosage: 40 MG MONDAY, WEDNESDAY, FRIDAY, 20 THE OTHER
     Route: 048

REACTIONS (5)
  - Product use issue [Unknown]
  - Drug effect increased [Unknown]
  - Product lot number issue [None]
  - Physical product label issue [None]
  - Product physical issue [None]
